FAERS Safety Report 5835095-1 (Version None)
Quarter: 2008Q3

REPORT INFORMATION
  Report Type: 
  Country: None (occurrence: None)
  Receive Date: 20080805
  Receipt Date: 20080805
  Transmission Date: 20090109
  Serious: Yes (Other)
  Sender: FDA-Public Use
  Company Number: None

PATIENT
  Age: 47 Year
  Sex: Female
  Weight: 63.05 kg

DRUGS (1)
  1. TYSABRI [Suspect]
     Indication: MULTIPLE SCLEROSIS
     Dosage: MONTHLY
     Dates: start: 20070501, end: 20080401

REACTIONS (5)
  - CHEST PAIN [None]
  - DRUG DOSE OMISSION [None]
  - FLANK PAIN [None]
  - HEART RATE DECREASED [None]
  - HEART RATE IRREGULAR [None]
